FAERS Safety Report 23129627 (Version 1)
Quarter: 2023Q4

REPORT INFORMATION
  Report Type: Report from Study
  Country: BR (occurrence: BR)
  Receive Date: 20231031
  Receipt Date: 20231031
  Transmission Date: 20240110
  Serious: Yes (Other)
  Sender: FDA-Public Use
  Company Number: BR-002147023-NVSC2023BR231073

PATIENT
  Sex: Male

DRUGS (3)
  1. ENTRESTO [Suspect]
     Active Substance: SACUBITRIL\VALSARTAN
     Indication: Product used for unknown indication
     Dosage: 200 MG/KG
     Route: 065
  2. ENTRESTO [Suspect]
     Active Substance: SACUBITRIL\VALSARTAN
     Dosage: 200 MG
     Route: 065
  3. ENTRESTO [Suspect]
     Active Substance: SACUBITRIL\VALSARTAN
     Dosage: 100 MG
     Route: 065

REACTIONS (7)
  - Hepatic steatosis [Recovering/Resolving]
  - Blood bilirubin increased [Recovered/Resolved]
  - Weight decreased [Unknown]
  - Blood pressure decreased [Unknown]
  - General physical health deterioration [Not Recovered/Not Resolved]
  - Nausea [Unknown]
  - Vomiting [Unknown]
